FAERS Safety Report 12890849 (Version 3)
Quarter: 2016Q4

REPORT INFORMATION
  Report Type: Spontaneous
  Country: DE (occurrence: DE)
  Receive Date: 20161027
  Receipt Date: 20161213
  Transmission Date: 20170207
  Serious: Yes (Other)
  Sender: FDA-Public Use
  Company Number: DE-BAXALTA-2016BLT007705

PATIENT
  Age: 57 Year
  Sex: Female
  Weight: 85 kg

DRUGS (6)
  1. PROTHROMPLEX NF [Suspect]
     Active Substance: ANTITHROMBIN III HUMAN\COAGULATION FACTOR IX HUMAN\COAGULATION FACTOR VII HUMAN\COAGULATION FACTOR X HUMAN\PROTEIN C\PROTEIN S HUMAN\PROTHROMBIN
     Indication: PELVIC FRACTURE
     Dosage: UNK
     Route: 065
     Dates: start: 1983
  2. NEBIVOLOL. [Concomitant]
     Active Substance: NEBIVOLOL
     Indication: PRODUCT USED FOR UNKNOWN INDICATION
     Route: 065
  3. NOVALGIN [Concomitant]
     Active Substance: METAMIZOLE SODIUM
     Indication: PRODUCT USED FOR UNKNOWN INDICATION
     Route: 065
  4. OLMETEC [Concomitant]
     Active Substance: OLMESARTAN MEDOXOMIL
     Indication: PRODUCT USED FOR UNKNOWN INDICATION
     Dosage: UNK
     Route: 065
  5. NAPROXEN. [Concomitant]
     Active Substance: NAPROXEN
     Indication: PRODUCT USED FOR UNKNOWN INDICATION
     Route: 065
  6. IMMUSEVEN [Suspect]
     Active Substance: COAGULATION FACTOR VII HUMAN
     Indication: FACTOR VII DEFICIENCY
     Dosage: UNK
     Route: 065
     Dates: start: 20080630, end: 20081114

REACTIONS (1)
  - Hepatitis C [Unknown]

NARRATIVE: CASE EVENT DATE: 20160713
